FAERS Safety Report 4806805-7 (Version None)
Quarter: 2005Q4

REPORT INFORMATION
  Report Type: 
  Country: None (occurrence: None)
  Receive Date: 20051019
  Receipt Date: 20051006
  Transmission Date: 20060501
  Serious: Yes (Life-Threatening)
  Sender: FDA-Public Use
  Company Number: 2005140231

PATIENT
  Age: 67 Year
  Sex: Female
  Weight: 50 kg

DRUGS (10)
  1. PREDNISONE [Suspect]
     Indication: ILL-DEFINED DISORDER
     Dosage: ORAL
     Route: 048
  2. CYCLOPHOSPHAMIDE [Suspect]
     Indication: ILL-DEFINED DISORDER
     Dosage: (200 MG, CYCLIC), INTRAVENOUS
     Route: 042
     Dates: start: 20050914
  3. DOXORUBICIN HYDROCHLORIDE POWDER [Suspect]
     Indication: ILL-DEFINED DISORDER
     Dosage: (40 MG, CYCLIC), INTRAVENOUS
     Route: 042
     Dates: start: 20050914
  4. VINCRISTINE [Suspect]
     Indication: ILL-DEFINED DISORDER
     Dosage: (2 MG, CYCLIC), INTRAVENOUS
     Route: 042
     Dates: start: 20050914
  5. RANITIDINE HYDROCHLORIDE [Suspect]
     Indication: ILL-DEFINED DISORDER
     Dosage: 300 MG (150 MG, 2 IN 1 D),
  6. REPAGLINIDE (REPAGLINIDE) [Concomitant]
  7. DIHYDROCODEINE COMPOUND [Concomitant]
  8. TRAMADOL HCL [Concomitant]
  9. CEFTRIAXONE [Concomitant]
  10. CLARITHROMYCIN [Concomitant]

REACTIONS (4)
  - ANAEMIA [None]
  - HAEMOGLOBIN INCREASED [None]
  - NEUTROPENIA [None]
  - THROMBOCYTOPENIA [None]
